FAERS Safety Report 25012781 (Version 3)
Quarter: 2025Q3

REPORT INFORMATION
  Report Type: Spontaneous
  Country: CA (occurrence: CA)
  Receive Date: 20250226
  Receipt Date: 20250915
  Transmission Date: 20251020
  Serious: Yes (Other)
  Sender: ACCORD
  Company Number: CA-Accord-470680

PATIENT
  Age: 44 Year
  Sex: Female

DRUGS (1)
  1. TACROLIMUS [Suspect]
     Active Substance: TACROLIMUS
     Indication: Immunosuppressant drug therapy

REACTIONS (1)
  - Crohn^s disease [Recovering/Resolving]

NARRATIVE: CASE EVENT DATE: 20230101
